FAERS Safety Report 9387734 (Version 1)
Quarter: 2013Q3

REPORT INFORMATION
  Report Type: Spontaneous
  Country: FR (occurrence: None)
  Receive Date: 20130703
  Receipt Date: 20130703
  Transmission Date: 20140515
  Serious: Yes (Hospitalization)
  Sender: FDA-Public Use
  Company Number: 222099

PATIENT
  Age: 53 Year
  Sex: Male

DRUGS (3)
  1. INNOHEP (TINZAPARIN SODIUM) [Suspect]
     Indication: TIBIA FRACTURE
     Route: 058
     Dates: start: 20130314, end: 20130327
  2. TRAMADOL (TRAMADOL) [Suspect]
     Indication: TIBIA FRACTURE
     Dates: start: 20130314, end: 20130318
  3. TRAMADOL (TRAMADOL) [Suspect]
     Indication: FIBULA FRACTURE
     Dates: start: 20130314, end: 20130318

REACTIONS (4)
  - Rash pustular [None]
  - Eczema [None]
  - Rash maculo-papular [None]
  - Incorrect drug administration duration [None]
